FAERS Safety Report 8405050 (Version 5)
Quarter: 2016Q1

REPORT INFORMATION
  Report Type: Spontaneous
  Country: JP (occurrence: JP)
  Receive Date: 20120214
  Receipt Date: 20160323
  Transmission Date: 20160526
  Serious: Yes (Other)
  Sender: FDA-Public Use
  Company Number: JP-BRISTOL-MYERS SQUIBB COMPANY-16242703

PATIENT
  Age: 37 Year
  Sex: Female
  Weight: 72 kg

DRUGS (4)
  1. DEPAKENE [Concomitant]
     Active Substance: VALPROIC ACID
     Indication: PRODUCT USED FOR UNKNOWN INDICATION
     Dosage: UNK
     Route: 048
     Dates: start: 20110915, end: 20111130
  2. ABILIFY [Suspect]
     Active Substance: ARIPIPRAZOLE
     Dosage: 18 ML, QD
     Route: 048
     Dates: start: 20111031, end: 20111130
  3. RISPERIDONE. [Suspect]
     Active Substance: RISPERIDONE
     Indication: SCHIZOAFFECTIVE DISORDER
     Dosage: 4 MG, QD
     Route: 048
     Dates: start: 20111017, end: 20111029
  4. ABILIFY [Suspect]
     Active Substance: ARIPIPRAZOLE
     Indication: SCHIZOAFFECTIVE DISORDER
     Dosage: 6 ML, QD
     Route: 048
     Dates: start: 20111028, end: 20111030

REACTIONS (5)
  - Off label use [Unknown]
  - Premature labour [Recovered/Resolved]
  - Premature delivery [Unknown]
  - Maternal exposure during pregnancy [Recovered/Resolved]
  - Caesarean section [Unknown]

NARRATIVE: CASE EVENT DATE: 20111130
